FAERS Safety Report 15118436 (Version 2)
Quarter: 2018Q3

REPORT INFORMATION
  Report Type: Report from Study
  Country: JP (occurrence: JP)
  Receive Date: 20180708
  Receipt Date: 20180905
  Transmission Date: 20181010
  Serious: Yes (Other)
  Sender: FDA-Public Use
  Company Number: JP-ALEXION PHARMACEUTICALS INC.-A201804269

PATIENT
  Age: 37 Year
  Sex: Female

DRUGS (11)
  1. METHYLPREDNISOLONE. [Concomitant]
     Active Substance: METHYLPREDNISOLONE
     Dosage: 30 MG, QD
     Route: 041
     Dates: start: 20170817, end: 20170823
  2. TAKEPRON [Concomitant]
     Active Substance: LANSOPRAZOLE
     Indication: PROPHYLAXIS
     Dosage: 30 MG, BID
     Route: 041
     Dates: start: 20170810, end: 20170815
  3. PREDONINE [Concomitant]
     Active Substance: PREDNISOLONE
     Indication: ATYPICAL HAEMOLYTIC URAEMIC SYNDROME
     Dosage: 10 MG, QD
     Route: 041
     Dates: start: 20170829, end: 20170903
  4. SOLIRIS [Suspect]
     Active Substance: ECULIZUMAB
     Indication: ATYPICAL HAEMOLYTIC URAEMIC SYNDROME
     Dosage: 900 MG, QW
     Route: 042
     Dates: start: 20170815, end: 20170905
  5. NEXIUM [Concomitant]
     Active Substance: ESOMEPRAZOLE MAGNESIUM
     Indication: PROPHYLAXIS
     Dosage: 20 MG, QD
     Route: 048
     Dates: start: 20170816, end: 20171018
  6. SOLIRIS [Suspect]
     Active Substance: ECULIZUMAB
     Dosage: 1200 MG, UNK
     Route: 042
     Dates: start: 20170912
  7. CALCICOL [Concomitant]
     Active Substance: CALCIUM GLUCONATE
     Indication: HYPOCALCAEMIA
     Dosage: 5 ML, QD
     Route: 041
     Dates: start: 20170811, end: 20170814
  8. METHYLPREDNISOLONE. [Concomitant]
     Active Substance: METHYLPREDNISOLONE
     Dosage: 20 MG, QD
     Route: 041
     Dates: start: 20170824, end: 20170828
  9. PRIMPERAN [Concomitant]
     Active Substance: METOCLOPRAMIDE HYDROCHLORIDE
     Indication: ATYPICAL HAEMOLYTIC URAEMIC SYNDROME
     Dosage: 10 MG, QD
     Route: 041
     Dates: start: 20170809, end: 20170911
  10. NICARDIPINE [Concomitant]
     Active Substance: NICARDIPINE
     Indication: ATYPICAL HAEMOLYTIC URAEMIC SYNDROME
     Dosage: 20 MG, UNK
     Route: 041
     Dates: start: 20170812, end: 20170813
  11. METHYLPREDNISOLONE. [Concomitant]
     Active Substance: METHYLPREDNISOLONE
     Indication: ATYPICAL HAEMOLYTIC URAEMIC SYNDROME
     Dosage: 40 MG, QD
     Route: 041
     Dates: start: 20170812, end: 20170816

REACTIONS (6)
  - Pancreatitis acute [Recovering/Resolving]
  - Inappropriate schedule of drug administration [Unknown]
  - Constipation [Recovered/Resolved]
  - Hypoalbuminaemia [Recovered/Resolved]
  - Chronic gastritis [Recovered/Resolved]
  - Liver disorder [Recovered/Resolved]

NARRATIVE: CASE EVENT DATE: 20170816
